FAERS Safety Report 9580069 (Version 1)
Quarter: 2013Q3

REPORT INFORMATION
  Report Type: Spontaneous
  Country: US (occurrence: None)
  Receive Date: 20130916
  Receipt Date: 20130916
  Transmission Date: 20140515
  Serious: Yes (Hospitalization, Other)
  Sender: FDA-Public Use
  Company Number: JPI-P-028913

PATIENT
  Age: 25 Year
  Sex: Female

DRUGS (1)
  1. XYREM (500 MILLIGRAM/MILLILITERS, SOLUTION) (SODIUM OXYBATE) [Suspect]
     Indication: CATAPLEXY
     Dosage: 4.5 GM (2.25 GM, 2 IN 1 D), ORAL
     Route: 048
     Dates: start: 20070402

REACTIONS (8)
  - Depression suicidal [None]
  - Drug dependence [None]
  - Intentional drug misuse [None]
  - Overdose [None]
  - Memory impairment [None]
  - Confusional state [None]
  - Urinary incontinence [None]
  - Faecal incontinence [None]
